FAERS Safety Report 18121269 (Version 3)
Quarter: 2020Q3

REPORT INFORMATION
  Report Type: Spontaneous
  Country: US (occurrence: US)
  Receive Date: 20200807
  Receipt Date: 20200928
  Transmission Date: 20201103
  Serious: Yes (Hospitalization, Other)
  Sender: FDA-Public Use
  Company Number: US-ROCHE-2653864

PATIENT
  Sex: Female

DRUGS (4)
  1. VALIUM [Suspect]
     Active Substance: DIAZEPAM
     Indication: PRODUCT USED FOR UNKNOWN INDICATION
     Dosage: ONGOING : NO
     Route: 065
  2. TUCATINIB [Suspect]
     Active Substance: TUCATINIB
     Indication: BREAST CANCER
     Dosage: ONGOING: NO
     Route: 065
  3. TUCATINIB [Suspect]
     Active Substance: TUCATINIB
     Indication: BREAST CANCER FEMALE
  4. ABILIFY [Suspect]
     Active Substance: ARIPIPRAZOLE
     Indication: PRODUCT USED FOR UNKNOWN INDICATION
     Route: 065

REACTIONS (11)
  - Illness [Unknown]
  - Diarrhoea [Unknown]
  - Drug interaction [Unknown]
  - Weight decreased [Unknown]
  - Pyrexia [Unknown]
  - Infection [Unknown]
  - Protein total abnormal [Unknown]
  - Pneumonia [Unknown]
  - Vomiting [Recovered/Resolved]
  - Streptococcal infection [Unknown]
  - Chest wall abscess [Unknown]

NARRATIVE: CASE EVENT DATE: 20200701
